FAERS Safety Report 24538182 (Version 3)
Quarter: 2024Q4

REPORT INFORMATION
  Report Type: Spontaneous
  Country: US (occurrence: US)
  Receive Date: 20241023
  Receipt Date: 20241113
  Transmission Date: 20250115
  Serious: Yes (Life-Threatening, Hospitalization, Other)
  Sender: LUPIN
  Company Number: US-LUPIN PHARMACEUTICALS INC.-2024-10250

PATIENT
  Age: 76 Year
  Sex: Female

DRUGS (2)
  1. TRAMADOL [Suspect]
     Active Substance: TRAMADOL
     Indication: Product used for unknown indication
     Dosage: UNK
     Route: 065
  2. BACLOFEN [Suspect]
     Active Substance: BACLOFEN
     Indication: Product used for unknown indication
     Dosage: UNK
     Route: 065

REACTIONS (7)
  - Overdose [Unknown]
  - Pulseless electrical activity [Recovered/Resolved]
  - Status epilepticus [Recovering/Resolving]
  - Coma [Recovered/Resolved]
  - Somatosensory evoked potentials abnormal [Recovering/Resolving]
  - Cognitive disorder [Recovering/Resolving]
  - Areflexia [Recovering/Resolving]
